FAERS Safety Report 5953621-9 (Version None)
Quarter: 2008Q4

REPORT INFORMATION
  Report Type: 
  Country: None (occurrence: None)
  Receive Date: 20081114
  Receipt Date: 20081113
  Transmission Date: 20090506
  Serious: Yes (Life-Threatening, Hospitalization, Disabling)
  Sender: FDA-Public Use
  Company Number: B0538350A

PATIENT
  Sex: Male

DRUGS (11)
  1. AVANDAMET [Suspect]
     Dosage: 8MG PER DAY
     Dates: start: 20041001, end: 20080412
  2. ASPIRIN [Suspect]
     Indication: ACUTE CORONARY SYNDROME
     Dosage: 75MG PER DAY
     Dates: start: 20000101, end: 20080413
  3. CLEXANE [Suspect]
     Indication: ACUTE CORONARY SYNDROME
     Dosage: 2MGK PER DAY
     Route: 058
     Dates: start: 20080412, end: 20080413
  4. CLOPIDOGREL [Suspect]
     Indication: ACUTE CORONARY SYNDROME
     Dates: start: 20080412, end: 20080413
  5. ETORICOXIB [Suspect]
     Dates: start: 20080407, end: 20080412
  6. FUROSEMIDE [Concomitant]
     Indication: FLUID RETENTION
     Dosage: 40MG PER DAY
     Dates: start: 20080401
  7. CANDESARTAN CILEXETIL [Concomitant]
     Dates: start: 20000101, end: 20080412
  8. BENDROFLUAZIDE [Concomitant]
     Dates: start: 20000101, end: 20080412
  9. FERROUS SULFATE TAB [Concomitant]
     Route: 048
  10. AMLODIPINE [Concomitant]
     Dates: start: 20020101, end: 20080418
  11. ALBUTEROL SULFATE [Concomitant]
     Route: 055

REACTIONS (12)
  - ATRIAL FIBRILLATION [None]
  - CARDIAC FAILURE CONGESTIVE [None]
  - CHEST PAIN [None]
  - DYSPNOEA [None]
  - FATIGUE [None]
  - FLUID RETENTION [None]
  - GASTROINTESTINAL HAEMORRHAGE [None]
  - HAEMATEMESIS [None]
  - OEDEMA PERIPHERAL [None]
  - PERICARDITIS [None]
  - PLEURAL EFFUSION [None]
  - RENAL FAILURE ACUTE [None]
